FAERS Safety Report 15239922 (Version 7)
Quarter: 2018Q4

REPORT INFORMATION
  Report Type: Report from Study
  Country: ZA (occurrence: ZA)
  Receive Date: 20180803
  Receipt Date: 20181107
  Transmission Date: 20190204
  Serious: Yes (Hospitalization, Other)
  Sender: FDA-Public Use
  Company Number: PHHY2018ZA061235

PATIENT
  Age: 32 Year
  Sex: Female

DRUGS (4)
  1. GILENYA [Suspect]
     Active Substance: FINGOLIMOD HYDROCHLORIDE
     Dosage: 0.5 MG, QD
     Route: 048
     Dates: start: 20180726
  2. GILENYA [Suspect]
     Active Substance: FINGOLIMOD HYDROCHLORIDE
     Indication: RELAPSING-REMITTING MULTIPLE SCLEROSIS
     Dosage: 0.5 MG, QD
     Route: 048
     Dates: start: 20180719
  3. TRISPORAL [Concomitant]
     Active Substance: ITRACONAZOLE
     Indication: PRODUCT USED FOR UNKNOWN INDICATION
     Dosage: 2 OT, QW
     Route: 065
  4. MULTI VITAMIN [Concomitant]
     Active Substance: VITAMINS
     Indication: PRODUCT USED FOR UNKNOWN INDICATION
     Route: 065

REACTIONS (21)
  - Malaise [Unknown]
  - Concomitant disease aggravated [Unknown]
  - Bone pain [Unknown]
  - Feeling cold [Unknown]
  - Dysgeusia [Unknown]
  - Speech disorder [Unknown]
  - Expanded disability status scale score increased [Unknown]
  - Headache [Not Recovered/Not Resolved]
  - Heart rate irregular [Unknown]
  - Arthralgia [Unknown]
  - Feeling hot [Unknown]
  - Pain [Unknown]
  - Influenza [Recovered/Resolved]
  - Neck pain [Not Recovered/Not Resolved]
  - Migraine [Unknown]
  - Nausea [Recovering/Resolving]
  - Hypoaesthesia oral [Unknown]
  - Hypoaesthesia [Unknown]
  - Chills [Unknown]
  - Blood pressure fluctuation [Unknown]
  - Photophobia [Unknown]

NARRATIVE: CASE EVENT DATE: 20180726
